FAERS Safety Report 13975011 (Version 1)
Quarter: 2017Q3

REPORT INFORMATION
  Report Type: Report from Study
  Country: US (occurrence: US)
  Receive Date: 20170915
  Receipt Date: 20170915
  Transmission Date: 20171128
  Serious: Yes (Hospitalization, Other)
  Sender: FDA-Public Use
  Company Number: US-GILEAD-2017-0293393

PATIENT
  Age: 81 Year
  Sex: Female

DRUGS (16)
  1. VALSARTAN. [Concomitant]
     Active Substance: VALSARTAN
  2. ADVAIR HFA [Concomitant]
     Active Substance: FLUTICASONE PROPIONATE\SALMETEROL XINAFOATE
  3. DIGOXIN. [Concomitant]
     Active Substance: DIGOXIN
  4. PRADAXA [Concomitant]
     Active Substance: DABIGATRAN ETEXILATE MESYLATE
  5. MONTELUKAST [Concomitant]
     Active Substance: MONTELUKAST SODIUM
  6. FISH OIL [Concomitant]
     Active Substance: FISH OIL
  7. OXYGEN. [Concomitant]
     Active Substance: OXYGEN
  8. ALLOPURINOL. [Concomitant]
     Active Substance: ALLOPURINOL
  9. AMLODIPINE [Concomitant]
     Active Substance: AMLODIPINE BESYLATE
  10. BYSTOLIC [Concomitant]
     Active Substance: NEBIVOLOL HYDROCHLORIDE
  11. VITAMIN D                          /00107901/ [Concomitant]
     Active Substance: ERGOCALCIFEROL
  12. VENTOLIN [Concomitant]
     Active Substance: ALBUTEROL SULFATE
  13. ALBUTEROL                          /00139501/ [Concomitant]
     Active Substance: ALBUTEROL
  14. FUROSEMIDE. [Concomitant]
     Active Substance: FUROSEMIDE
  15. AMBRISENTAN [Suspect]
     Active Substance: AMBRISENTAN
     Indication: PULMONARY HYPERTENSION
     Dosage: 5 MG, QD
     Route: 065
  16. VITAMIN C [Concomitant]
     Active Substance: ASCORBIC ACID

REACTIONS (6)
  - Dysphonia [Not Recovered/Not Resolved]
  - Respiratory disorder [Unknown]
  - Mechanical ventilation [Recovered/Resolved]
  - Heart rate decreased [Unknown]
  - Heart rate increased [Unknown]
  - Asthenia [Not Recovered/Not Resolved]
